FAERS Safety Report 7998060-4 (Version None)
Quarter: 2011Q4

REPORT INFORMATION
  Report Type: 
  Country: None (occurrence: None)
  Receive Date: 20111221
  Receipt Date: 20101223
  Transmission Date: 20120403
  Serious: No
  Sender: FDA-Public Use
  Company Number: US-GLAXOSMITHKLINE-A0901433A

PATIENT
  Age: 76 Year
  Sex: Female
  Weight: 90.9 kg

DRUGS (1)
  1. LOVAZA [Suspect]
     Indication: PRODUCT USED FOR UNKNOWN INDICATION
     Route: 048
     Dates: start: 20101208, end: 20101215

REACTIONS (2)
  - PRODUCT QUALITY ISSUE [None]
  - NAUSEA [None]
